FAERS Safety Report 8191974-4 (Version None)
Quarter: 2012Q1

REPORT INFORMATION
  Report Type: 
  Country: None (occurrence: None)
  Receive Date: 20120307
  Receipt Date: 20120302
  Transmission Date: 20120608
  Serious: Yes (Death, Hospitalization)
  Sender: FDA-Public Use
  Company Number: PHHY2012DE018327

PATIENT
  Sex: Female
  Weight: 67 kg

DRUGS (9)
  1. ZOMETA [Suspect]
     Dosage: 4 MG, UNK
     Route: 042
     Dates: start: 20110815
  2. FEMARA [Suspect]
     Dosage: 2.5 MG, UNK
     Route: 048
     Dates: start: 20100311, end: 20110408
  3. FASLODEX [Concomitant]
     Dosage: 250 MG, PER DAY
     Dates: start: 20110124, end: 20110408
  4. FENTANYL-100 [Concomitant]
     Dosage: 25 UG, PER HOUR
     Dates: start: 20110427
  5. ZOMETA [Suspect]
     Indication: BONE DISORDER
     Dosage: 4 MG, UNK
     Route: 042
     Dates: start: 20100519
  6. ARTHROTEC [Concomitant]
     Dates: start: 20100326
  7. NAVELBINE [Concomitant]
     Dosage: 45 MG, UNK
     Dates: start: 20110408, end: 20110715
  8. NOVALGIN [Concomitant]
     Dosage: UNK UKN, UNK
     Dates: start: 20110427
  9. VITAMIN D [Concomitant]
     Dosage: UNK UKN, UNK

REACTIONS (2)
  - DEATH [None]
  - HUMERUS FRACTURE [None]
